FAERS Safety Report 7555203-4 (Version None)
Quarter: 2011Q2

REPORT INFORMATION
  Report Type: 
  Country: None (occurrence: None)
  Receive Date: 20110617
  Receipt Date: 20110606
  Transmission Date: 20111010
  Serious: Yes (Hospitalization)
  Sender: FDA-Public Use
  Company Number: PHFR2011GB00757

PATIENT
  Sex: Male

DRUGS (5)
  1. CLONAZEPAM [Concomitant]
  2. AMOXICILLIN [Concomitant]
  3. CLOZAPINE [Suspect]
     Dosage: 100 MG, QD
     Route: 048
  4. CLARITHROMYCIN [Concomitant]
  5. CLOZAPINE [Suspect]
     Indication: SCHIZOPHRENIA
     Dosage: 250 MG, QD
     Route: 048
     Dates: start: 20040809

REACTIONS (7)
  - WRONG TECHNIQUE IN DRUG USAGE PROCESS [None]
  - DYSPHAGIA [None]
  - SOMNOLENCE [None]
  - INFLUENZA [None]
  - LUNG DISORDER [None]
  - LOWER RESPIRATORY TRACT INFECTION [None]
  - PNEUMONIA [None]
